FAERS Safety Report 13123894 (Version 1)
Quarter: 2017Q1

REPORT INFORMATION
  Report Type: Report from Study
  Country: US (occurrence: US)
  Receive Date: 20170118
  Receipt Date: 20170118
  Transmission Date: 20170428
  Serious: Yes (Other)
  Sender: FDA-Public Use
  Company Number: US-ROCHE-1879789

PATIENT
  Age: 49 Year
  Sex: Female

DRUGS (3)
  1. HERCEPTIN [Suspect]
     Active Substance: TRASTUZUMAB
     Indication: BREAST CANCER FEMALE
     Dosage: ONGOING:NO
     Route: 042
     Dates: start: 2011
  2. ACTIVASE [Suspect]
     Active Substance: ALTEPLASE
     Indication: DEVICE EMBOLISATION
     Dosage: ONGOING :NO
     Route: 065
     Dates: start: 20161208, end: 20161208
  3. KADCYLA [Suspect]
     Active Substance: ADO-TRASTUZUMAB EMTANSINE
     Indication: BREAST CANCER FEMALE
     Dosage: ONGOING:YES
     Route: 042
     Dates: start: 20161208

REACTIONS (1)
  - Embolism [Unknown]

NARRATIVE: CASE EVENT DATE: 20161208
